FAERS Safety Report 5064476-1 (Version None)
Quarter: 2006Q3

REPORT INFORMATION
  Report Type: 
  Country: None (occurrence: None)
  Receive Date: 20060725
  Receipt Date: 20060718
  Transmission Date: 20061208
  Serious: Yes (Other)
  Sender: FDA-Public Use
  Company Number: SPV1-2006-00234

PATIENT
  Age: 31 Year
  Sex: Female

DRUGS (1)
  1. ADDERALL 10 [Suspect]

REACTIONS (5)
  - ACUTE MYOCARDIAL INFARCTION [None]
  - CORONARY ARTERY ANEURYSM [None]
  - CORONARY ARTERY PERFORATION [None]
  - DRUG ABUSER [None]
  - DRUG SCREEN POSITIVE [None]
